FAERS Safety Report 11772661 (Version 1)
Quarter: 2015Q4

REPORT INFORMATION
  Report Type: Spontaneous
  Country: US (occurrence: US)
  Receive Date: 20151124
  Receipt Date: 20151124
  Transmission Date: 20160304
  Serious: Yes (Other)
  Sender: FDA-Public Use
  Company Number: US-PFIZER INC-2015396147

PATIENT
  Sex: Female

DRUGS (1)
  1. XELJANZ [Suspect]
     Active Substance: TOFACITINIB CITRATE
     Dosage: UNK

REACTIONS (6)
  - Vomiting [Unknown]
  - Painful respiration [Unknown]
  - Hypophagia [Unknown]
  - Cholelithiasis [Unknown]
  - Abdominal pain [Unknown]
  - Dysstasia [Unknown]
